FAERS Safety Report 14890079 (Version 2)
Quarter: 2019Q1

REPORT INFORMATION
  Report Type: Spontaneous
  Country: US (occurrence: US)
  Receive Date: 20180514
  Receipt Date: 20190110
  Transmission Date: 20190417
  Serious: Yes (Hospitalization)
  Sender: FDA-Public Use
  Company Number: US-MYLANLABS-2018M1031031

PATIENT

DRUGS (1)
  1. METHOTREXATE. [Suspect]
     Active Substance: METHOTREXATE
     Indication: AUTOIMMUNE DISORDER
     Dosage: 6 DOSAGE FORM
     Route: 065

REACTIONS (4)
  - Product dispensing error [Unknown]
  - Incorrect dose administered [Unknown]
  - Adverse drug reaction [Unknown]
  - Injury [Unknown]
